FAERS Safety Report 5872894-4 (Version None)
Quarter: 2008Q3

REPORT INFORMATION
  Report Type: 
  Country: None (occurrence: None)
  Receive Date: 20080905
  Receipt Date: 20080824
  Transmission Date: 20090109
  Serious: Yes (Other)
  Sender: FDA-Public Use
  Company Number: MY-PFIZER INC-2008067298

PATIENT
  Sex: Male

DRUGS (4)
  1. NEURONTIN [Suspect]
     Indication: NEURALGIA
     Route: 048
     Dates: start: 20080706, end: 20080701
  2. NEURONTIN [Suspect]
     Indication: NEURALGIA
     Route: 048
  3. HERBAL PREPARATION [Concomitant]
  4. CYANOCOBALAMIN [Concomitant]
     Route: 048

REACTIONS (4)
  - DISTURBANCE IN ATTENTION [None]
  - PHOTOPHOBIA [None]
  - SOMNOLENCE [None]
  - VISION BLURRED [None]
